FAERS Safety Report 14354228 (Version 2)
Quarter: 2018Q1

REPORT INFORMATION
  Report Type: Spontaneous
  Country: BE (occurrence: BE)
  Receive Date: 20180105
  Receipt Date: 20180212
  Transmission Date: 20180509
  Serious: Yes (Death, Hospitalization)
  Sender: FDA-Public Use
  Company Number: BE-ACTELION-A-CH2018-165331

PATIENT
  Age: 72 Year
  Sex: Male
  Weight: 82.7 kg

DRUGS (1)
  1. VELETRI [Suspect]
     Active Substance: EPOPROSTENOL
     Indication: PULMONARY HYPERTENSION
     Dosage: 27 NG/KG, PER MIN
     Route: 042
     Dates: start: 201510, end: 20171123

REACTIONS (3)
  - Respiratory failure [Fatal]
  - Right ventricular failure [Fatal]
  - Hypoxia [Fatal]

NARRATIVE: CASE EVENT DATE: 20171120
